FAERS Safety Report 5956913-2 (Version None)
Quarter: 2008Q4

REPORT INFORMATION
  Report Type: 
  Country: None (occurrence: None)
  Receive Date: 20081118
  Receipt Date: 20081106
  Transmission Date: 20090506
  Serious: Yes (Hospitalization)
  Sender: FDA-Public Use
  Company Number: NL-ROCHE-596180

PATIENT
  Sex: Female
  Weight: 60 kg

DRUGS (2)
  1. XELODA [Suspect]
     Indication: BREAST CANCER
     Route: 048
     Dates: start: 20081016, end: 20081025
  2. METOPROLOL TARTRATE [Concomitant]
     Dosage: DOSE REGIMEN: 1 X 50 MG
     Route: 048
     Dates: start: 20000101

REACTIONS (3)
  - ENTERITIS [None]
  - FAECES DISCOLOURED [None]
  - ILEUS [None]
